FAERS Safety Report 22193297 (Version 1)
Quarter: 2023Q2

REPORT INFORMATION
  Report Type: Report from Study
  Country: GB (occurrence: GB)
  Receive Date: 20230410
  Receipt Date: 20230410
  Transmission Date: 20230722
  Serious: Yes (Other)
  Sender: FDA-Public Use
  Company Number: GB-009507513-1711GBR008426

PATIENT
  Age: 58 Year
  Sex: Male
  Weight: 89.9 kg

DRUGS (11)
  1. TEMOZOLOMIDE [Suspect]
     Active Substance: TEMOZOLOMIDE
     Indication: Glioblastoma multiforme
     Dosage: 75 MILLIGRAM/SQ. METER, QD
     Route: 048
     Dates: start: 20170912, end: 20171009
  2. TEMOZOLOMIDE [Suspect]
     Active Substance: TEMOZOLOMIDE
     Dosage: 100 MILLIGRAM/SQ. METER, QD
     Route: 048
     Dates: start: 20171129
  3. BACTRIM [Concomitant]
     Active Substance: SULFAMETHOXAZOLE\TRIMETHOPRIM
     Indication: Antifungal prophylaxis
     Dosage: 480 MG, BID ON MONDAY, WEDNESDAY, FRIDAY
     Route: 048
     Dates: start: 20170911, end: 20171030
  4. CYCLIZINE HYDROCHLORIDE [Concomitant]
     Active Substance: CYCLIZINE HYDROCHLORIDE
     Indication: Nausea
     Dosage: 50 MILLIGRAM, TID
     Route: 048
     Dates: start: 20171006, end: 20171030
  5. CYCLIZINE HYDROCHLORIDE [Concomitant]
     Active Substance: CYCLIZINE HYDROCHLORIDE
     Dosage: TOTAL DAILY DOSE 50 MG, PRN
     Route: 048
     Dates: start: 20171031
  6. DEXAMETHASONE [Concomitant]
     Active Substance: DEXAMETHASONE
     Indication: Nausea
     Dosage: 2 MILLIGRAM, QD
     Route: 048
     Dates: start: 20171006, end: 20171016
  7. DEXAMETHASONE [Concomitant]
     Active Substance: DEXAMETHASONE
     Dosage: 2 MILLIGRAM, QOD
     Route: 048
     Dates: start: 20171016
  8. LANSOPRAZOLE [Concomitant]
     Active Substance: LANSOPRAZOLE
     Indication: Prophylaxis
     Dosage: 30 MILLIGRAM, QD
     Route: 048
     Dates: start: 20171006, end: 20171030
  9. LEVETIRACETAM [Concomitant]
     Active Substance: LEVETIRACETAM
     Indication: Seizure prophylaxis
     Dosage: 250 MILLIGRAM, BID
     Route: 048
     Dates: start: 20170712
  10. MAXIDEX [Concomitant]
     Active Substance: DEXAMETHASONE
     Indication: Ocular toxicity
     Dosage: 1-2 DROPS; FOR 7 DAYS, BEGINNING 2 DAYS PRIOR TO EACH STUDY DRUG ADMINISTRATION (3 IN 1 D)
     Route: 047
  11. MAXIDEX [Concomitant]
     Active Substance: DEXAMETHASONE
     Indication: Prophylaxis

REACTIONS (3)
  - Glomerular filtration rate decreased [Recovered/Resolved]
  - Keratopathy [Unknown]
  - Blood creatinine increased [Unknown]

NARRATIVE: CASE EVENT DATE: 20171009
